FAERS Safety Report 4280702-0 (Version None)
Quarter: 2004Q1

REPORT INFORMATION
  Report Type: 
  Country: None (occurrence: None)
  Receive Date: 20040127
  Receipt Date: 20040120
  Transmission Date: 20041129
  Serious: Yes (Other)
  Sender: FDA-Public Use
  Company Number: 2004193549US

PATIENT

DRUGS (8)
  1. INSPRA [Suspect]
     Indication: BLOOD ALDOSTERONE INCREASED
     Dosage: 50 MG, BID; ORAL
     Route: 048
  2. DEMADEX [Concomitant]
  3. TOPROL-XL [Concomitant]
  4. KCL TAB [Concomitant]
  5. CRESTOR [Concomitant]
  6. FLOMAX [Concomitant]
  7. PROSCAR [Concomitant]
  8. AMARYL [Concomitant]

REACTIONS (1)
  - WEIGHT INCREASED [None]
